FAERS Safety Report 4416667-8 (Version None)
Quarter: 2004Q3

REPORT INFORMATION
  Report Type: 
  Country: None (occurrence: None)
  Receive Date: 20040802
  Receipt Date: 20040723
  Transmission Date: 20050211
  Serious: Yes (Death, Other)
  Sender: FDA-Public Use
  Company Number: US-2004-028869

PATIENT
  Age: 60 Year
  Sex: Male
  Weight: 108.4 kg

DRUGS (6)
  1. CAMPATH [Suspect]
     Indication: CHRONIC LYMPHOCYTIC LEUKAEMIA
     Dosage: 3 MG, 1 DOSE, INTRAVENOUS
     Route: 042
     Dates: start: 20040518, end: 20040518
  2. CAMPATH [Suspect]
     Indication: CHRONIC LYMPHOCYTIC LEUKAEMIA
     Dosage: 3 MG, 1 DOSE, INTRAVENOUS
     Route: 042
     Dates: start: 20040520, end: 20040520
  3. TYLENOL [Concomitant]
  4. BENADRYL ^ACHE^ (MENTHOL, AMMONIUM CHLORIDE, DIPHENHYDRAMINE HYDROCHLO [Concomitant]
  5. HYDROCHLOROTHIAZIDE [Concomitant]
  6. ATENOLOL [Concomitant]

REACTIONS (2)
  - BLOOD PRESSURE INCREASED [None]
  - CEREBROVASCULAR ACCIDENT [None]
